FAERS Safety Report 6381288-7 (Version None)
Quarter: 2009Q3

REPORT INFORMATION
  Report Type: 
  Country: None (occurrence: None)
  Receive Date: 20090923
  Receipt Date: 20090908
  Transmission Date: 20100115
  Serious: Yes (Hospitalization)
  Sender: FDA-Public Use
  Company Number: 2009002720

PATIENT
  Age: 78 Year
  Sex: Male

DRUGS (1)
  1. TARCEVA [Suspect]
     Indication: LUNG NEOPLASM MALIGNANT
     Dosage: (50 MG, QD), ORAL
     Route: 048
     Dates: start: 20071201, end: 20090715

REACTIONS (2)
  - ACUTE MYELOID LEUKAEMIA [None]
  - LEG AMPUTATION [None]
